FAERS Safety Report 11004733 (Version 1)
Quarter: 2015Q2

REPORT INFORMATION
  Report Type: Spontaneous
  Country: None (occurrence: None)
  Receive Date: 20150408
  Receipt Date: 20150408
  Transmission Date: 20150821
  Serious: Yes (Hospitalization)
  Sender: FDA-Public Use
  Company Number: None

PATIENT
  Age: 64 Year
  Sex: Female
  Weight: 73.48 kg

DRUGS (1)
  1. RISPERIDONE 3 MG [Suspect]
     Active Substance: RISPERIDONE
     Indication: SCHIZOPHRENIA
     Route: 048
     Dates: start: 20150103, end: 20150304

REACTIONS (3)
  - Acute kidney injury [None]
  - Labile blood pressure [None]
  - Rhabdomyolysis [None]

NARRATIVE: CASE EVENT DATE: 20150304
